FAERS Safety Report 7557074-9 (Version None)
Quarter: 2011Q2

REPORT INFORMATION
  Report Type: 
  Country: None (occurrence: None)
  Receive Date: 20110620
  Receipt Date: 20110606
  Transmission Date: 20111010
  Serious: Yes (Hospitalization)
  Sender: FDA-Public Use
  Company Number: AT-SANOFI-AVENTIS-2011SA035288

PATIENT
  Age: 71 Year
  Sex: Male
  Weight: 71 kg

DRUGS (6)
  1. AVASTIN [Suspect]
     Indication: GASTRIC CANCER
     Route: 042
     Dates: start: 20110328, end: 20110328
  2. CAMPTOSAR [Suspect]
     Indication: GASTRIC CANCER
     Route: 042
     Dates: start: 20110328, end: 20110328
  3. ELOXATIN [Suspect]
     Route: 042
     Dates: start: 20110601, end: 20110601
  4. CAMPTOSAR [Suspect]
     Route: 042
     Dates: start: 20110601, end: 20110601
  5. ELOXATIN [Suspect]
     Indication: GASTRIC CANCER
     Route: 042
     Dates: start: 20110328, end: 20110328
  6. AVASTIN [Suspect]
     Route: 042
     Dates: start: 20110601, end: 20110601

REACTIONS (1)
  - PEPTIC ULCER [None]
